FAERS Safety Report 7889535-7 (Version None)
Quarter: 2011Q4

REPORT INFORMATION
  Report Type: 
  Country: None (occurrence: None)
  Receive Date: 20111103
  Receipt Date: 20100920
  Transmission Date: 20120403
  Serious: No
  Sender: FDA-Public Use
  Company Number: US-BRISTOL-MYERS SQUIBB COMPANY-15296460

PATIENT
  Age: 39 Year
  Sex: Female

DRUGS (12)
  1. PRILOSEC [Concomitant]
  2. ASMANEX TWISTHALER [Concomitant]
  3. ASCORBIC ACID [Concomitant]
  4. HYDROCHLOROTHIAZIDE [Concomitant]
  5. LEXAPRO [Concomitant]
  6. LITHIUM CITRATE [Concomitant]
  7. CLARITIN [Concomitant]
  8. KENALOG-40 [Suspect]
     Indication: ARTHRITIS
     Dates: start: 20080529
  9. FLONASE [Concomitant]
  10. LISINOPRIL [Concomitant]
  11. LORAZEPAM [Concomitant]
  12. MOTRIN [Concomitant]

REACTIONS (2)
  - INJECTION SITE PAIN [None]
  - INJECTION SITE ATROPHY [None]
